FAERS Safety Report 5737910-9 (Version None)
Quarter: 2008Q2

REPORT INFORMATION
  Report Type: 
  Country: None (occurrence: None)
  Receive Date: 20080509
  Receipt Date: 20080430
  Transmission Date: 20081010
  Serious: Yes (Life-Threatening, Hospitalization)
  Sender: FDA-Public Use
  Company Number: VISP-NO-0804S-0246

PATIENT
  Age: 76 Year
  Sex: Male

DRUGS (1)
  1. VISIPAQUE [Suspect]
     Indication: CHEST PAIN
     Dosage: 150 ML, SINGLE DOSE, I.V.
     Route: 042
     Dates: start: 20080421, end: 20080421

REACTIONS (5)
  - BLOOD PRESSURE DECREASED [None]
  - CHEST PAIN [None]
  - CONTRAST MEDIA REACTION [None]
  - LOSS OF CONSCIOUSNESS [None]
  - SEPSIS [None]
